FAERS Safety Report 12499386 (Version 1)
Quarter: 2016Q2

REPORT INFORMATION
  Report Type: Spontaneous
  Country: None (occurrence: None)
  Receive Date: 20160624
  Receipt Date: 20160624
  Transmission Date: 20160815
  Serious: Yes (Death)
  Sender: FDA-Public Use
  Company Number: None

PATIENT
  Age: 5 Month
  Sex: Female

DRUGS (1)
  1. NINLARO [Suspect]
     Active Substance: IXAZOMIB
     Indication: NEOPLASM MALIGNANT
     Dosage: WEEKLY FOR 3 WEEKS
     Route: 048
     Dates: start: 20160603, end: 20160622

REACTIONS (1)
  - Death [None]

NARRATIVE: CASE EVENT DATE: 20160622
